FAERS Safety Report 10501838 (Version 4)
Quarter: 2014Q4

REPORT INFORMATION
  Report Type: Spontaneous
  Country: US (occurrence: US)
  Receive Date: 20141007
  Receipt Date: 20141203
  Transmission Date: 20150528
  Serious: No
  Sender: FDA-Public Use
  Company Number: US-PFIZER INC-2014272645

PATIENT
  Age: 55 Year
  Sex: Female
  Weight: 73 kg

DRUGS (2)
  1. BUPROPION [Concomitant]
     Active Substance: BUPROPION
     Indication: DEPRESSION
     Dosage: UNK
  2. QUILLIVANT XR [Suspect]
     Active Substance: METHYLPHENIDATE HYDROCHLORIDE
     Indication: ATTENTION DEFICIT/HYPERACTIVITY DISORDER
     Dosage: UNK, ONCE A DAY

REACTIONS (3)
  - Pain [Recovered/Resolved]
  - Product quality issue [Recovered/Resolved]
  - Product package associated injury [Recovered/Resolved]
